FAERS Safety Report 7511975-6 (Version None)
Quarter: 2011Q2

REPORT INFORMATION
  Report Type: 
  Country: None (occurrence: None)
  Receive Date: 20110531
  Receipt Date: 20110518
  Transmission Date: 20111010
  Serious: Yes (Hospitalization)
  Sender: FDA-Public Use
  Company Number: PHHY2011US28369

PATIENT
  Sex: Female

DRUGS (1)
  1. EXJADE [Suspect]
     Indication: SICKLE CELL ANAEMIA
     Dosage: 1000 MG, QD
     Route: 048
     Dates: start: 20110401

REACTIONS (5)
  - DIARRHOEA [None]
  - RENAL DISORDER [None]
  - LIVER DISORDER [None]
  - GASTROENTERITIS VIRAL [None]
  - HEPATITIS C [None]
